FAERS Safety Report 8773698 (Version 1)
Quarter: 2012Q4

REPORT INFORMATION
  Report Type: 
  Country: US (occurrence: US)
  Receive Date: 20120907
  Receipt Date: 20120907
  Transmission Date: 20130627
  Serious: No
  Sender: FDA-Public Use
  Company Number: US-ASTRAZENECA-2012SE60669

PATIENT
  Age: 55 Year
  Sex: Female

DRUGS (1)
  1. NEXIUM [Suspect]
     Route: 048

REACTIONS (8)
  - Gastritis [Unknown]
  - Respiratory disorder [Unknown]
  - Haematemesis [Unknown]
  - Weight decreased [Unknown]
  - Infection [Unknown]
  - Sinusitis [Unknown]
  - Malaise [Unknown]
  - Vomiting [Unknown]
